FAERS Safety Report 5680064-8 (Version None)
Quarter: 2008Q1

REPORT INFORMATION
  Report Type: 
  Country: None (occurrence: None)
  Receive Date: 20080326
  Receipt Date: 20080326
  Transmission Date: 20080703
  Serious: Yes (Death, Hospitalization)
  Sender: FDA-Public Use
  Company Number: None

PATIENT
  Age: 64 Year
  Sex: Male
  Weight: 90.2658 kg

DRUGS (2)
  1. HEPARIN [Suspect]
     Indication: ANGIOPLASTY
     Dates: start: 20070723, end: 20070728
  2. HEPARIN [Suspect]
     Indication: MYOCARDIAL INFARCTION
     Dates: start: 20070723, end: 20070728

REACTIONS (4)
  - CONTUSION [None]
  - HAEMATOMA [None]
  - OEDEMA [None]
  - THERAPEUTIC PRODUCT CONTAMINATION [None]
